FAERS Safety Report 9040287 (Version 1)
Quarter: 2013Q1

REPORT INFORMATION
  Report Type: Report from Study
  Country: US (occurrence: US)
  Receive Date: 20130129
  Receipt Date: 20130129
  Transmission Date: 20140127
  Serious: No
  Sender: FDA-Public Use
  Company Number: US-ABBOTT-12P-163-0889905-00

PATIENT
  Age: 44 Year
  Sex: Male
  Weight: 158.9 kg

DRUGS (10)
  1. HUMIRA 40 MG/0.8 ML PEN [Suspect]
     Indication: PYODERMA GANGRENOSUM
     Dates: start: 20111225
  2. CELLCEPT [Suspect]
     Indication: PYODERMA GANGRENOSUM
  3. PREDNISONE [Concomitant]
     Indication: PYODERMA GANGRENOSUM
  4. TOPROL XL [Concomitant]
     Indication: HYPERTENSION
  5. ALDACTONE [Concomitant]
     Indication: HYPERTENSION
  6. POTASSIUM [Concomitant]
     Indication: ELECTROLYTE SUBSTITUTION THERAPY
  7. DAPSONE [Concomitant]
     Indication: PYODERMA GANGRENOSUM
  8. VITAMIN D3 [Concomitant]
     Indication: VITAMIN SUPPLEMENTATION
  9. VITAMIN C [Concomitant]
     Indication: VITAMIN SUPPLEMENTATION
  10. PROBIOTIC [Concomitant]
     Indication: SUPPLEMENTATION THERAPY

REACTIONS (12)
  - Upper respiratory tract infection [Unknown]
  - Vomiting [Recovering/Resolving]
  - Somnolence [Recovered/Resolved]
  - Off label use [Not Recovered/Not Resolved]
  - Feeling abnormal [Recovering/Resolving]
  - Cough [Not Recovered/Not Resolved]
  - Nasal congestion [Not Recovered/Not Resolved]
  - Nausea [Recovering/Resolving]
  - Diarrhoea [Recovering/Resolving]
  - Myalgia [Recovering/Resolving]
  - Pyrexia [Recovering/Resolving]
  - Nasopharyngitis [Unknown]
